FAERS Safety Report 10592330 (Version 1)
Quarter: 2014Q4

REPORT INFORMATION
  Report Type: Spontaneous
  Country: FR (occurrence: None)
  Receive Date: 20141117
  Receipt Date: 20141117
  Transmission Date: 20150529
  Serious: Yes (Hospitalization, Disabling)
  Sender: FDA-Public Use
  Company Number: B0869923A

PATIENT
  Age: 60 Year
  Sex: Male
  Weight: 58.7 kg

DRUGS (9)
  1. INEXIUM (ESOMEPRAZOLE MAGNESIUM) UNKNOWN [Concomitant]
  2. MARAVIROC [Suspect]
     Active Substance: MARAVIROC
     Indication: HIV INFECTION
     Dosage: 150 DF, TID?
     Dates: start: 20130116
  3. TRUVADA (EMTRICITABINE + TENOFOVIR DISOPROXIL FUMARATE) [Concomitant]
  4. BACTRIM (SULFAMETHOXAZOLE + TRIMETHOPRIM) UNKNOWN [Concomitant]
  5. TIORFAN (RACECADOTRIL) UNKNOWN [Concomitant]
  6. KIVEXA [Suspect]
     Active Substance: ABACAVIR SULFATE\LAMIVUDINE
  7. PREZISTA [Suspect]
     Active Substance: DARUNAVIR ETHANOLATE
     Indication: HIV INFECTION
     Dates: start: 20130116
  8. NORVIR [Suspect]
     Active Substance: RITONAVIR
     Indication: HIV INFECTION
     Dates: start: 20130116
  9. SMECTA (SECTITE) UNKNOWN [Concomitant]

REACTIONS (7)
  - Steatorrhoea [None]
  - Malabsorption [None]
  - Diarrhoea [None]
  - Xerosis [None]
  - Weight decreased [None]
  - Malnutrition [None]
  - Muscle atrophy [None]

NARRATIVE: CASE EVENT DATE: 20130205
